FAERS Safety Report 8301234 (Version 4)
Quarter: 2012Q4

REPORT INFORMATION
  Report Type: 
  Country: US (occurrence: US)
  Receive Date: 20111219
  Receipt Date: 20121004
  Transmission Date: 20130627
  Serious: Yes (Other)
  Sender: FDA-Public Use
  Company Number: US-ASTRAZENECA-2010SE52824

PATIENT
  Age: 78 Year
  Sex: Female

DRUGS (2)
  1. NEXIUM [Suspect]
     Route: 048
  2. CRESTOR [Suspect]
     Route: 048
     Dates: start: 201001, end: 201007

REACTIONS (15)
  - Cataract [Unknown]
  - Renal disorder [Unknown]
  - Urinary tract infection [Unknown]
  - Arthritis [Unknown]
  - Pain [Unknown]
  - Gastrooesophageal reflux disease [Unknown]
  - Hearing impaired [Unknown]
  - Oedema peripheral [Recovering/Resolving]
  - Multiple allergies [Unknown]
  - Cough [Unknown]
  - Oropharyngeal pain [Unknown]
  - Speech disorder [Unknown]
  - Insomnia [Unknown]
  - Aphagia [Unknown]
  - Drug dose omission [Unknown]
